FAERS Safety Report 5510868-3 (Version None)
Quarter: 2007Q4

REPORT INFORMATION
  Report Type: 
  Country: None (occurrence: None)
  Receive Date: 20071107
  Receipt Date: 20071023
  Transmission Date: 20080405
  Serious: Yes (Other)
  Sender: FDA-Public Use
  Company Number: SPV1-2007-04696

PATIENT
  Age: 48 Year
  Sex: Male

DRUGS (3)
  1. ADDERALL 10 [Suspect]
     Indication: ATTENTION DEFICIT/HYPERACTIVITY DISORDER
     Dosage: 10-20 MG
     Dates: start: 20071023
  2. LEXAPRO [Concomitant]
  3. ANTACID (ALUMINIUM HYDROXIDE, DIMETHICONE, MAGNESIUM HYDROXIDE) [Concomitant]

REACTIONS (7)
  - ANXIETY DISORDER [None]
  - CONDITION AGGRAVATED [None]
  - LOSS OF CONSCIOUSNESS [None]
  - MANIA [None]
  - OBSESSIVE-COMPULSIVE DISORDER [None]
  - SKIN DISCOLOURATION [None]
  - VOMITING [None]
